FAERS Safety Report 9569624 (Version 1)
Quarter: 2013Q3

REPORT INFORMATION
  Report Type: Spontaneous
  Country: US (occurrence: US)
  Receive Date: 20130930
  Receipt Date: 20130930
  Transmission Date: 20140515
  Serious: No
  Sender: FDA-Public Use
  Company Number: US-AMGEN-USASP2013066396

PATIENT
  Age: 49 Year
  Sex: Female
  Weight: 81.63 kg

DRUGS (6)
  1. ENBREL [Suspect]
     Indication: PRODUCT USED FOR UNKNOWN INDICATION
     Dosage: 50 MG, QWK
     Route: 058
  2. ZOVIRAX                            /00587301/ [Concomitant]
     Dosage: 5 %, UNK
  3. LEVAQUIN [Concomitant]
     Dosage: 250 MG, UNK
  4. FLONASE                            /00908302/ [Concomitant]
     Dosage: 0.05 %, UNK
  5. ASMANEX [Concomitant]
     Dosage: 220 MUG, UNK
  6. ALBUTEROL                          /00139501/ [Concomitant]
     Dosage: 90 MUG, UNK

REACTIONS (1)
  - Sinusitis [Unknown]
